FAERS Safety Report 6035969-5 (Version None)
Quarter: 2009Q1

REPORT INFORMATION
  Report Type: 
  Country: None (occurrence: None)
  Receive Date: 20090113
  Receipt Date: 20090106
  Transmission Date: 20090719
  Serious: Yes (Hospitalization)
  Sender: FDA-Public Use
  Company Number: US-ABBOTT-08P-163-0459545-00

PATIENT
  Sex: Female
  Weight: 65.83 kg

DRUGS (7)
  1. DEPAKOTE [Suspect]
     Indication: DRUG USE FOR UNKNOWN INDICATION
  2. DEPAKOTE ER [Suspect]
     Indication: BIPOLAR DISORDER
  3. DEPAKOTE ER [Suspect]
     Route: 048
     Dates: start: 20070728, end: 20070804
  4. ABILIFY [Suspect]
     Indication: ANTIDEPRESSANT THERAPY
     Dates: start: 20070701
  5. EFFEXOR XR [Concomitant]
     Indication: DEPRESSION
     Route: 048
     Dates: start: 19710101
  6. CLINOPIN [Concomitant]
     Indication: DEPRESSION
     Route: 048
     Dates: start: 20070801
  7. CLONAZEPAN [Concomitant]
     Indication: DEPRESSION
     Dates: start: 19830101

REACTIONS (11)
  - ABASIA [None]
  - ABNORMAL BEHAVIOUR [None]
  - ADVERSE DRUG REACTION [None]
  - ASTHENIA [None]
  - BALANCE DISORDER [None]
  - DYSPHASIA [None]
  - FALL [None]
  - NAUSEA [None]
  - SENSORY DISTURBANCE [None]
  - SKIN LACERATION [None]
  - STUPOR [None]
